FAERS Safety Report 17699973 (Version 1)
Quarter: 2020Q2

REPORT INFORMATION
  Report Type: Spontaneous
  Country: US (occurrence: US)
  Receive Date: 20200423
  Receipt Date: 20200423
  Transmission Date: 20200714
  Serious: Yes (Life-Threatening, Hospitalization, Other)
  Sender: FDA-Public Use
  Company Number: US-ASTELLAS-2019US019238

PATIENT
  Age: 67 Year
  Sex: Male

DRUGS (4)
  1. LEXISCAN [Suspect]
     Active Substance: REGADENOSON
     Indication: SCAN MYOCARDIAL PERFUSION
     Dosage: 0.4 MG, ONCE
     Route: 042
     Dates: start: 20190430, end: 20190430
  2. LEXISCAN [Suspect]
     Active Substance: REGADENOSON
     Indication: SCAN MYOCARDIAL PERFUSION
     Dosage: 0.4 MG, ONCE
     Route: 042
     Dates: start: 20190430, end: 20190430
  3. LEXISCAN [Suspect]
     Active Substance: REGADENOSON
     Indication: SCAN MYOCARDIAL PERFUSION
     Dosage: 0.4 MG, ONCE
     Route: 042
     Dates: start: 20190430, end: 20190430
  4. LEXISCAN [Suspect]
     Active Substance: REGADENOSON
     Indication: SCAN MYOCARDIAL PERFUSION
     Dosage: 0.4 MG, ONCE
     Route: 042
     Dates: start: 20190430, end: 20190430

REACTIONS (2)
  - Abdominal pain [Unknown]
  - Acute myocardial infarction [Recovered/Resolved]

NARRATIVE: CASE EVENT DATE: 20190430
